FAERS Safety Report 4458229-2 (Version None)
Quarter: 2004Q3

REPORT INFORMATION
  Report Type: 
  Country: None (occurrence: None)
  Receive Date: 20040924
  Receipt Date: 20040818
  Transmission Date: 20050211
  Serious: Yes (Hospitalization)
  Sender: FDA-Public Use
  Company Number: GB-ABBOTT-04P-167-0271150-00

PATIENT
  Sex: Female
  Weight: 54 kg

DRUGS (7)
  1. HUMIRA [Suspect]
     Indication: PSORIATIC ARTHROPATHY
     Route: 058
     Dates: start: 20030215
  2. METHOTREXATE [Concomitant]
     Indication: DRUG USE FOR UNKNOWN INDICATION
  3. FOLIC ACID [Concomitant]
     Indication: DRUG USE FOR UNKNOWN INDICATION
  4. DICLOFENAC [Concomitant]
     Indication: DRUG USE FOR UNKNOWN INDICATION
  5. OROMORPH [Concomitant]
     Indication: DRUG USE FOR UNKNOWN INDICATION
  6. PARACETAMOL [Concomitant]
     Indication: DRUG USE FOR UNKNOWN INDICATION
  7. AMITRIPTYLINE HCL [Concomitant]
     Indication: DRUG USE FOR UNKNOWN INDICATION

REACTIONS (3)
  - DERMATITIS PSORIASIFORM [None]
  - SKIN BACTERIAL INFECTION [None]
  - STAPHYLOCOCCAL INFECTION [None]
